FAERS Safety Report 16003729 (Version 2)
Quarter: 2019Q2

REPORT INFORMATION
  Report Type: Spontaneous
  Country: PT (occurrence: PT)
  Receive Date: 20190226
  Receipt Date: 20190425
  Transmission Date: 20190711
  Serious: Yes (Other)
  Sender: FDA-Public Use
  Company Number: PT-ROCHE-2272733

PATIENT
  Age: 17 Year
  Sex: Female

DRUGS (1)
  1. XOLAIR [Suspect]
     Active Substance: OMALIZUMAB
     Indication: ASTHMA
     Route: 065

REACTIONS (15)
  - Asthma [Unknown]
  - Asthmatic crisis [Unknown]
  - Red blood cell count decreased [Unknown]
  - Neutrophil count increased [Unknown]
  - Administration site erythema [Unknown]
  - Blood potassium decreased [Unknown]
  - Cough [Unknown]
  - Dyspnoea [Unknown]
  - Eosinophil count increased [Unknown]
  - White blood cell count increased [Unknown]
  - Administration site papule [Unknown]
  - Blood glucose increased [Unknown]
  - Lymphocyte count increased [Unknown]
  - Wheezing [Unknown]
  - Pruritus [Unknown]

NARRATIVE: CASE EVENT DATE: 20180214
